FAERS Safety Report 25750599 (Version 2)
Quarter: 2025Q3

REPORT INFORMATION
  Report Type: Spontaneous
  Country: EU (occurrence: EU)
  Receive Date: 20250902
  Receipt Date: 20250919
  Transmission Date: 20251021
  Serious: Yes (Other)
  Sender: MYLAN
  Company Number: EU-BoehringerIngelheim-2025-BI-089971

PATIENT
  Age: 87 Year
  Weight: 80 kg

DRUGS (4)
  1. DABIGATRAN [Suspect]
     Active Substance: DABIGATRAN
     Indication: Atrial fibrillation
     Dosage: 110 MILLIGRAM, BID (12 HR)
     Dates: start: 20250806
  2. DABIGATRAN [Suspect]
     Active Substance: DABIGATRAN
     Dosage: 110 MILLIGRAM, BID (12 HR)
     Route: 065
     Dates: start: 20250806
  3. DABIGATRAN [Suspect]
     Active Substance: DABIGATRAN
     Dosage: 110 MILLIGRAM, BID (12 HR)
     Route: 065
     Dates: start: 20250806
  4. DABIGATRAN [Suspect]
     Active Substance: DABIGATRAN
     Dosage: 110 MILLIGRAM, BID (12 HR)
     Dates: start: 20250806

REACTIONS (5)
  - Cerebral artery occlusion [Unknown]
  - Presyncope [Unknown]
  - Dysarthria [Unknown]
  - Sopor [Unknown]
  - Facial paresis [Unknown]

NARRATIVE: CASE EVENT DATE: 20250806
